FAERS Safety Report 8516203-0 (Version None)
Quarter: 2012Q3

REPORT INFORMATION
  Report Type: 
  Country: None (occurrence: None)
  Receive Date: 20120717
  Receipt Date: 20120710
  Transmission Date: 20120928
  Serious: Yes (Hospitalization, Other)
  Sender: FDA-Public Use
  Company Number: CA-ROCHE-GNE309128

PATIENT
  Sex: Female
  Weight: 110 kg

DRUGS (2)
  1. COZAAR [Concomitant]
     Indication: PRODUCT USED FOR UNKNOWN INDICATION
     Dosage: UNK
  2. OMALIZUMAB [Suspect]
     Indication: ASTHMA
     Dosage: 225 MG, BIW
     Route: 058
     Dates: start: 20070430

REACTIONS (11)
  - MUSCULOSKELETAL STIFFNESS [None]
  - FATIGUE [None]
  - HAEMORRHAGE [None]
  - AORTIC STENOSIS [None]
  - HAEMATOMA [None]
  - ARRHYTHMIA [None]
  - HYPERTENSION [None]
  - DYSPNOEA [None]
  - CHEST PAIN [None]
  - GAIT DISTURBANCE [None]
  - PULMONARY OEDEMA [None]
